FAERS Safety Report 16127656 (Version 1)
Quarter: 2019Q2

REPORT INFORMATION
  Report Type: Spontaneous
  Country: CH (occurrence: CH)
  Receive Date: 20190328
  Receipt Date: 20190328
  Transmission Date: 20190711
  Serious: Yes (Hospitalization)
  Sender: FDA-Public Use
  Company Number: CH-B. BRAUN MEDICAL INC.-2064818

PATIENT
  Age: 9 Month
  Sex: Male

DRUGS (2)
  1. DEXTROSE INJECTIONS USP 0264-7510-00 0264-7510-20 [Suspect]
     Active Substance: DEXTROSE
     Route: 041
     Dates: start: 20180427, end: 20180428
  2. LALUGEN (HYALURONIC ACID) [Suspect]
     Active Substance: HYALURONIC ACID

REACTIONS (1)
  - Infusion site extravasation [Recovered/Resolved]

NARRATIVE: CASE EVENT DATE: 20180427
